FAERS Safety Report 6441234-4 (Version None)
Quarter: 2009Q4

REPORT INFORMATION
  Report Type: 
  Country: None (occurrence: None)
  Receive Date: 20091113
  Receipt Date: 20091113
  Transmission Date: 20100525
  Serious: Yes (Hospitalization)
  Sender: FDA-Public Use
  Company Number: None

PATIENT
  Age: 60 Year
  Sex: Male
  Weight: 74.1631 kg

DRUGS (1)
  1. PRIVIGEN [Suspect]
     Indication: HYPOGAMMAGLOBULINAEMIA
     Dosage: 20G 1 DOSE IV BOLUS
     Route: 040
     Dates: start: 20091009, end: 20091009

REACTIONS (1)
  - MENINGITIS ASEPTIC [None]
